FAERS Safety Report 8556604-8 (Version None)
Quarter: 2012Q3

REPORT INFORMATION
  Report Type: 
  Country: None (occurrence: None)
  Receive Date: 20120801
  Receipt Date: 20120724
  Transmission Date: 20120928
  Serious: Yes (Hospitalization)
  Sender: FDA-Public Use
  Company Number: US-BRISTOL-MYERS SQUIBB COMPANY-16802365

PATIENT
  Age: 56 Year
  Sex: Male
  Weight: 131 kg

DRUGS (22)
  1. ISOSORBIDE DINITRATE [Concomitant]
     Dosage: 1 F= 1 CAN. ROUTE: PEG TUBE. 6-7 TIMES DAILY
  2. SODIUM FLUORIDE [Concomitant]
     Dosage: DENTAL GEL 1.1% DT GEL. FOR 15-20MINS
  3. ERBITUX [Suspect]
     Indication: PHARYNGEAL CANCER STAGE UNSPECIFIED
     Dosage: INITIAL 978MG ON 18JUN12, THEN 610MG 25JUN2, 2JUL12, 9JUL12, 16JUL12. 250MG/M2 ONE/WEEK OVER 60MIN
     Route: 042
     Dates: start: 20120618, end: 20120716
  4. CLARITIN [Concomitant]
     Dosage: 1 DF= 1 TAB
     Route: 048
  5. MINOCYCLINE HCL [Concomitant]
     Dosage: CAPS
     Route: 048
  6. TRIAMCINOLONE [Concomitant]
     Indication: RASH
     Dosage: 0.5% EX
  7. ASPIRIN [Concomitant]
     Dosage: TABS. EVERY MORNING
     Route: 048
  8. CRESTOR [Concomitant]
     Dosage: 40MG. AT BEDTIME. 1 DF= 1 TABS
     Route: 048
  9. OMEGA 3 FATTY ACID [Concomitant]
     Dosage: CAPS. EVERY MORNING
     Route: 048
  10. POTASSIUM CHLORIDE [Concomitant]
     Indication: HYPOKALAEMIA
     Dosage: TABS
     Route: 048
  11. BUSPAR [Concomitant]
     Dosage: FORM: 15MG TABS. 1 DF= 0.5 TABS
     Route: 048
  12. INDAPAMIDE [Concomitant]
     Dosage: FORM: 2.5MG TABS . 1 DF= 1 TABS. EVERY MORNING
  13. PROCHLORPERAZINE [Concomitant]
     Indication: NAUSEA
     Dosage: EVERY 6 HRS. TABS
     Route: 048
  14. TRIAMCINOLONE [Concomitant]
     Dosage: 0.5% EX
  15. FOLIC ACID [Concomitant]
     Dosage: TABS. EVERY MORNING
     Route: 048
  16. MULTIPLE VITAMINS [Concomitant]
     Dosage: 1 DF= 1 TAB
     Route: 048
  17. CHLORHEXIDINE GLUCONATE [Concomitant]
     Dosage: 0.12% MT
  18. FLAXSEED OIL [Concomitant]
     Dosage: EVERY MORNING
     Route: 048
  19. VESICARE [Concomitant]
     Dosage: TABS. EVERY MORNING
     Route: 048
  20. DIFLUCAN [Concomitant]
     Dosage: THEN 1 TABS DAYS 2-14
     Route: 048
  21. DIOVAN HCT [Concomitant]
     Dosage: FORM: 320-12.5MG. EVERY MORNING
     Route: 048
  22. BETACAROTENE [Concomitant]
     Dosage: CAPS. EVERY MORNING
     Route: 048

REACTIONS (1)
  - DYSPHAGIA [None]
